FAERS Safety Report 8628481 (Version 2)
Quarter: 2013Q1

REPORT INFORMATION
  Report Type: Spontaneous
  Country: US (occurrence: US)
  Receive Date: 20120621
  Receipt Date: 20130322
  Transmission Date: 20140127
  Serious: Yes (Hospitalization)
  Sender: FDA-Public Use
  Company Number: US-ROCHE-1076617

PATIENT
  Age: 72 Year
  Sex: Female

DRUGS (2)
  1. BONIVA [Suspect]
     Indication: OSTEOPOROSIS
     Route: 048
  2. ACTONEL [Suspect]
     Indication: OSTEOPOROSIS
     Route: 065

REACTIONS (1)
  - Femur fracture [Unknown]
